FAERS Safety Report 8078034-8 (Version None)
Quarter: 2012Q1

REPORT INFORMATION
  Report Type: 
  Country: None (occurrence: None)
  Receive Date: 20120127
  Receipt Date: 20110107
  Transmission Date: 20120608
  Serious: No
  Sender: FDA-Public Use
  Company Number: US-ABBOTT-11P-163-0695860-00

PATIENT
  Sex: Female
  Weight: 101.24 kg

DRUGS (19)
  1. METFORMIN HCL [Concomitant]
     Indication: DIABETES MELLITUS
     Dosage: 1/2 TABLET BID
     Route: 048
  2. SINGULAIR [Concomitant]
     Indication: ASTHMA
     Route: 048
  3. CALCIUM W/D [Concomitant]
     Indication: MINERAL SUPPLEMENTATION
     Dosage: 600MG/?
     Route: 048
  4. PROPAFENONE HYDROCHLORIDE [Concomitant]
     Indication: HEART RATE IRREGULAR
     Route: 048
  5. OXYGEN [Concomitant]
     Indication: PRODUCT USED FOR UNKNOWN INDICATION
     Route: 055
  6. HUMIRA [Suspect]
     Indication: RHEUMATOID ARTHRITIS
     Route: 058
     Dates: start: 20101017, end: 20101201
  7. CELEBREX [Concomitant]
     Indication: ARTHRALGIA
     Route: 048
     Dates: end: 20110106
  8. STOOL SOFTENER [Concomitant]
     Indication: BOWEL MOVEMENT IRREGULARITY
     Route: 048
  9. HUMIRA [Suspect]
     Route: 058
     Dates: start: 20110106
  10. LANTUS [Concomitant]
     Indication: DIABETES MELLITUS
     Dosage: PER SLIDING SCALE
     Route: 058
  11. WARFARIN SODIUM [Concomitant]
     Indication: THROMBOSIS PROPHYLAXIS
     Dosage: 7.5MG=1 TAB 4 DAYS PER WEEK, 1/2 TAB THREE DAYS PER WEEK.
     Route: 048
  12. CARDIZEM CD [Concomitant]
     Indication: ATRIAL FIBRILLATION
     Route: 048
  13. FOLIC ACID [Concomitant]
     Indication: VITAMIN SUPPLEMENTATION
     Route: 048
  14. CRESTOR [Concomitant]
     Indication: BLOOD CHOLESTEROL INCREASED
     Route: 048
  15. NOVOLOG [Concomitant]
     Indication: DIABETES MELLITUS
     Dosage: PER SLIDING SCALE
     Route: 058
  16. PULMICORT [Concomitant]
     Indication: ASTHMA
     Route: 055
  17. SPIRONOLACTONE [Concomitant]
     Indication: DIURETIC THERAPY
     Route: 048
  18. MAGNESIUM SUPPLEMENT [Concomitant]
     Indication: MINERAL SUPPLEMENTATION
     Dosage: UNKNOWN STRENGTH
     Route: 048
  19. VALTERNA [Concomitant]
     Indication: BLOOD PRESSURE
     Dosage: 1/2 TAB DAILY
     Route: 048

REACTIONS (2)
  - RHEUMATOID ARTHRITIS [None]
  - NAUSEA [None]
